FAERS Safety Report 21129382 (Version 1)
Quarter: 2022Q3

REPORT INFORMATION
  Report Type: Other
  Country: US (occurrence: None)
  Receive Date: 20220725
  Receipt Date: 20220725
  Transmission Date: 20221027
  Serious: Yes (Death)
  Sender: FDA-Public Use
  Company Number: US-ROCHE-3144355

PATIENT
  Sex: Male

DRUGS (11)
  1. ALECENSA [Suspect]
     Active Substance: ALECTINIB HYDROCHLORIDE
     Indication: Bronchial carcinoma
     Dosage: 4 CAPSULES BY MOUTH 2 TIMES A DAY
     Route: 048
  2. ALECENSA [Suspect]
     Active Substance: ALECTINIB HYDROCHLORIDE
     Indication: Lung neoplasm malignant
  3. LIPITOR [Concomitant]
     Active Substance: ATORVASTATIN CALCIUM
     Dosage: 1 TAB BY MOUTH DAILY
  4. DECADRON [Concomitant]
     Active Substance: DEXAMETHASONE
     Dosage: TAKE 2 TAB BY MOUTH 2 TIMES DAILY FOR 6 DAYS
  5. VIBRAMYCIN [Concomitant]
     Active Substance: DOXYCYCLINE
     Dosage: TAKE 1 CAPSULE BY MOUTH 2 TIMES DAILY FOR 10 DAYS
  6. PEPCID [Concomitant]
     Active Substance: FAMOTIDINE
     Dosage: TAKE 1 TAB BY MOUTH TWICE A DAILY
  7. DIFLUCAN [Concomitant]
     Active Substance: FLUCONAZOLE
     Dosage: TAKE 1 TAB BY MOUTH DAILY FOR 8 DAYS, TAKE 200 MG ON FIRST DAY THEN 100 MG FOR THE FOLLOWING 6 DAYS
  8. NEURONTIN [Concomitant]
     Active Substance: GABAPENTIN
     Dosage: TAKE 3 CAPSULED BY MOUTH 3 TIMES A DAILY
  9. SODIUM CHLORIDE [Concomitant]
     Active Substance: SODIUM CHLORIDE
     Dosage: INFUSED 5 ML INTO VARIOUS CATHETER DAILY AS NEEDED (PETENCY) PRE/POST INFUSION
  10. MEGACE [Concomitant]
     Active Substance: MEGESTROL ACETATE
     Dosage: TAKE 10 MLS BY MOUTH DAILY
  11. FLOMAX [Concomitant]
     Active Substance: TAMSULOSIN HYDROCHLORIDE
     Dosage: TAKE 1 CAPSULE BY MOUTH NIGHTLY

REACTIONS (1)
  - Death [Fatal]
